FAERS Safety Report 10207013 (Version 3)
Quarter: 2014Q2

REPORT INFORMATION
  Report Type: Report from Study
  Country: CA (occurrence: CA)
  Receive Date: 20140530
  Receipt Date: 20140611
  Transmission Date: 20141212
  Serious: Yes (Hospitalization)
  Sender: FDA-Public Use
  Company Number: CA-JNJFOC-20140412426

PATIENT
  Age: 58 Year
  Sex: Female
  Weight: 84 kg

DRUGS (9)
  1. REMICADE [Suspect]
     Indication: CROHN^S DISEASE
     Route: 042
  2. REMICADE [Suspect]
     Indication: CROHN^S DISEASE
     Route: 042
     Dates: start: 20090711, end: 20140208
  3. BENADRYL [Concomitant]
     Route: 042
  4. TYLENOL [Concomitant]
     Route: 048
  5. IMURAN [Concomitant]
     Route: 065
  6. PANTOLOC [Concomitant]
     Route: 065
  7. FLUOXETINE [Concomitant]
     Route: 065
  8. RAMIPRIL [Concomitant]
     Route: 065
  9. BISOPROLOL [Concomitant]
     Route: 065

REACTIONS (3)
  - Angina pectoris [Unknown]
  - Gastroenteritis [Unknown]
  - Myocarditis [Unknown]
